FAERS Safety Report 6632273-9 (Version None)
Quarter: 2010Q1

REPORT INFORMATION
  Report Type: 
  Country: None (occurrence: None)
  Receive Date: 20100312
  Receipt Date: 20100306
  Transmission Date: 20100710
  Serious: Yes (Other)
  Sender: FDA-Public Use
  Company Number: US-CUBIST-2010S1000111

PATIENT
  Age: 60 Year
  Sex: Male

DRUGS (1)
  1. CUBICIN [Suspect]
     Indication: POST PROCEDURAL INFECTION

REACTIONS (1)
  - EOSINOPHILIC PNEUMONIA [None]
